FAERS Safety Report 5085500-6 (Version None)
Quarter: 2006Q3

REPORT INFORMATION
  Report Type: 
  Country: None (occurrence: None)
  Receive Date: 20060731
  Receipt Date: 20060227
  Transmission Date: 20061208
  Serious: Yes (Hospitalization, Other)
  Sender: FDA-Public Use
  Company Number: 200610396BWH

PATIENT
  Age: 32 Year
  Sex: Female

DRUGS (1)
  1. AVELOX [Suspect]
     Indication: BRONCHITIS

REACTIONS (7)
  - ANAPHYLACTIC REACTION [None]
  - ERYTHEMA [None]
  - MYDRIASIS [None]
  - NAUSEA [None]
  - PRURITUS [None]
  - SYNCOPE [None]
  - VOMITING [None]
